FAERS Safety Report 7750612-2 (Version None)
Quarter: 2011Q3

REPORT INFORMATION
  Report Type: 
  Country: None (occurrence: None)
  Receive Date: 20110914
  Receipt Date: 20110907
  Transmission Date: 20111222
  Serious: Yes (Hospitalization)
  Sender: FDA-Public Use
  Company Number: US-GLAXOSMITHKLINE-A0878760A

PATIENT
  Age: 49 Year
  Sex: Male
  Weight: 108 kg

DRUGS (6)
  1. LIPITOR [Concomitant]
  2. LOTREL [Concomitant]
  3. CARTIA XT [Concomitant]
  4. GLUCOVANCE [Concomitant]
  5. AVANDIA [Suspect]
     Indication: DIABETES MELLITUS
     Dosage: 4MG TWICE PER DAY
     Route: 048
     Dates: end: 20070201
  6. GLUCOTROL [Concomitant]

REACTIONS (5)
  - CARDIAC ARREST [None]
  - FLUID OVERLOAD [None]
  - MYOCARDIAL ISCHAEMIA [None]
  - CORONARY ARTERY DISEASE [None]
  - CARDIAC DISORDER [None]
